FAERS Safety Report 6836046-3 (Version None)
Quarter: 2010Q3

REPORT INFORMATION
  Report Type: 
  Country: None (occurrence: None)
  Receive Date: 20100713
  Receipt Date: 20100706
  Transmission Date: 20110219
  Serious: Yes (Hospitalization)
  Sender: FDA-Public Use
  Company Number: B0664917A

PATIENT
  Sex: Male
  Weight: 47.3 kg

DRUGS (7)
  1. ALKERAN [Suspect]
     Indication: MULTIPLE MYELOMA
     Dosage: 10MG PER DAY
     Route: 048
     Dates: start: 20100412, end: 20100523
  2. THALIDOMIDE [Suspect]
     Indication: MULTIPLE MYELOMA
     Dosage: 100MG PER DAY
     Route: 048
     Dates: start: 20100412, end: 20100523
  3. OMEPRAZOLE [Concomitant]
     Indication: ANTACID THERAPY
     Dosage: 4MG PER DAY
     Route: 048
  4. MOTILIUM [Concomitant]
     Indication: NAUSEA
     Route: 048
  5. RIOPAN [Concomitant]
     Indication: ANTACID THERAPY
     Dosage: 2400MG PER DAY
     Route: 048
  6. CORDARONE [Concomitant]
     Indication: ARRHYTHMIA
     Dosage: 200MG PER DAY
     Route: 048
  7. ASPIRIN [Concomitant]
     Indication: PROPHYLAXIS
     Dosage: 100MG PER DAY
     Route: 048

REACTIONS (2)
  - ABDOMINAL PAIN UPPER [None]
  - MYOCARDIAL INFARCTION [None]
